FAERS Safety Report 4806714-3 (Version None)
Quarter: 2005Q4

REPORT INFORMATION
  Report Type: 
  Country: None (occurrence: None)
  Receive Date: 20051019
  Receipt Date: 20051007
  Transmission Date: 20060501
  Serious: Yes (Hospitalization)
  Sender: FDA-Public Use
  Company Number: 200508349

PATIENT
  Age: 9 Year
  Sex: Male
  Weight: 21 kg

DRUGS (3)
  1. ALESION (EPINASTINE) [Suspect]
     Indication: URTICARIA
     Dosage: 6 MG QD PO
     Route: 048
     Dates: start: 20050914, end: 20050914
  2. BANAN [Suspect]
     Indication: PURULENCE
     Dosage: 50 MG QD PO
     Route: 048
     Dates: start: 20050913, end: 20050913
  3. LUVOX [Concomitant]

REACTIONS (3)
  - ERYTHEMA [None]
  - FACE OEDEMA [None]
  - URTICARIA [None]
